FAERS Safety Report 19981309 (Version 1)
Quarter: 2021Q4

REPORT INFORMATION
  Report Type: Spontaneous
  Country: US (occurrence: US)
  Receive Date: 20211022
  Receipt Date: 20211022
  Transmission Date: 20220303
  Serious: No
  Sender: FDA-Public Use
  Company Number: US-TEVA-2021-US-1965961

PATIENT
  Age: 56 Year
  Sex: Female

DRUGS (2)
  1. NEFAZODONE [Suspect]
     Active Substance: NEFAZODONE
     Indication: Depression
     Dosage: 400 MILLIGRAM DAILY; DOSE OF 200 MG (TWO 100 MG TABLETS) IN THE MORNING AND 200 MG (TWO 100 MG TABLE
     Route: 065
  2. NEFAZODONE [Suspect]
     Active Substance: NEFAZODONE
     Dosage: 50 MILLIGRAM DAILY;
     Route: 065
     Dates: start: 202105, end: 202108

REACTIONS (3)
  - Tinnitus [Not Recovered/Not Resolved]
  - Withdrawal syndrome [Not Recovered/Not Resolved]
  - Product availability issue [Unknown]

NARRATIVE: CASE EVENT DATE: 20210101
